FAERS Safety Report 8031027-9 (Version None)
Quarter: 2012Q1

REPORT INFORMATION
  Report Type: 
  Country: None (occurrence: None)
  Receive Date: 20120105
  Receipt Date: 20111220
  Transmission Date: 20120608
  Serious: Yes (Hospitalization)
  Sender: FDA-Public Use
  Company Number: 1000026257

PATIENT
  Age: 64 Year
  Sex: Female
  Weight: 55 kg

DRUGS (9)
  1. METOPROLOL (METOPROLOL) (TABLETS) (METOPROLOL) [Concomitant]
  2. VIANI FORTE (FLUTICASONE, SALMETEROL) (FLUTICASONE, SALMETEROL) [Concomitant]
  3. ROFLUMILAST (ROFLUMILAST) (TABLETS) [Suspect]
     Indication: CHRONIC OBSTRUCTIVE PULMONARY DISEASE
     Dosage: 250 MCG (500 MCG, 1 IN 2 D), ORAL
     Route: 048
     Dates: start: 20110715
  4. FORMOTEROL (FORMOTEROL) (FORMOTEROL) [Concomitant]
  5. CAPTOPRIL (CAPTOPRIL) (TABLETS) (CAPTOPRIL) [Concomitant]
  6. MEVERINE (MEBEVERINE HYDROCHLORIDE) (MEBEVERINE HYDROCHLORIDE) [Concomitant]
  7. ROFLUMILAST (ROFLUMILAST) (TABLETS) [Suspect]
     Indication: CHRONIC OBSTRUCTIVE PULMONARY DISEASE
     Dosage: 500 MCG (500 MCG, 1 IN 1 D), ORAL
     Route: 048
     Dates: start: 20100924, end: 20110714
  8. SPIRIVA (TIOTROPIUM BROMIDE) (CAPSULES) (TIOTROPIUM BROMIDE) [Concomitant]
  9. PANTOPRAZOLE (PANTOPRAZOLE) (PANTOPRAZOLE) [Concomitant]

REACTIONS (2)
  - WEIGHT DECREASED [None]
  - LUNG DISORDER [None]
